FAERS Safety Report 9236057 (Version 1)
Quarter: 2013Q2

REPORT INFORMATION
  Report Type: Spontaneous
  Country: DE (occurrence: DE)
  Receive Date: 20130417
  Receipt Date: 20130417
  Transmission Date: 20140414
  Serious: Yes (Other)
  Sender: FDA-Public Use
  Company Number: DE-RANBAXY-2013RR-67437

PATIENT
  Age: 68 Year
  Sex: Female

DRUGS (1)
  1. CLARITHROMYCIN [Suspect]
     Indication: CHRONIC OBSTRUCTIVE PULMONARY DISEASE
     Dosage: UNK
     Route: 048

REACTIONS (10)
  - Pruritus [Unknown]
  - Sleep disorder [Unknown]
  - Blood pressure decreased [Unknown]
  - Body temperature decreased [Unknown]
  - Heart rate increased [Unknown]
  - Tongue disorder [Unknown]
  - Glossodynia [Unknown]
  - Oral pain [Unknown]
  - Cheilitis [Unknown]
  - Anal inflammation [Unknown]
